FAERS Safety Report 4933347-0 (Version None)
Quarter: 2006Q1

REPORT INFORMATION
  Report Type: 
  Country: None (occurrence: None)
  Receive Date: 20060306
  Receipt Date: 20050930
  Transmission Date: 20060701
  Serious: Yes (Hospitalization)
  Sender: FDA-Public Use
  Company Number: US-MERCK-0510USA01010

PATIENT
  Age: 61 Year
  Sex: Female

DRUGS (3)
  1. VIOXX [Suspect]
     Indication: ARTHRITIS
     Route: 048
     Dates: start: 20020501
  2. VIOXX [Suspect]
     Indication: SHOULDER PAIN
     Route: 048
     Dates: start: 20020501
  3. FOSAMAX [Concomitant]
     Route: 065

REACTIONS (35)
  - ABDOMINAL PAIN [None]
  - ARRHYTHMIA [None]
  - ASTHENIA [None]
  - BACK PAIN [None]
  - CARDIOVASCULAR DISORDER [None]
  - CEREBROVASCULAR ACCIDENT [None]
  - DEMYELINATION [None]
  - DIAPHRAGMATIC DISORDER [None]
  - DIARRHOEA [None]
  - DIVERTICULUM [None]
  - DIZZINESS [None]
  - DYSPHAGIA [None]
  - DYSPNOEA [None]
  - FALL [None]
  - FATIGUE [None]
  - GASTROOESOPHAGEAL REFLUX DISEASE [None]
  - HAEMATOCHEZIA [None]
  - HEADACHE [None]
  - HIATUS HERNIA [None]
  - HYPERLIPIDAEMIA [None]
  - ISCHAEMIA [None]
  - LACUNAR INFARCTION [None]
  - LUNG NEOPLASM [None]
  - MIGRAINE [None]
  - MYOCARDIAL INFARCTION [None]
  - NAUSEA [None]
  - ORGAN FAILURE [None]
  - PELVIC PAIN [None]
  - PEPTIC ULCER [None]
  - PULMONARY EMBOLISM [None]
  - THROMBOSIS [None]
  - TRANSIENT ISCHAEMIC ATTACK [None]
  - URINE ODOUR ABNORMAL [None]
  - VENTRICULAR HYPERTROPHY [None]
  - VOMITING [None]
